FAERS Safety Report 16231400 (Version 3)
Quarter: 2019Q2

REPORT INFORMATION
  Report Type: Spontaneous
  Country: JP (occurrence: JP)
  Receive Date: 20190424
  Receipt Date: 20190603
  Transmission Date: 20190711
  Serious: Yes (Hospitalization, Other)
  Sender: FDA-Public Use
  Company Number: JP-ROCHE-2306334

PATIENT
  Age: 61 Year
  Sex: Female
  Weight: 55 kg

DRUGS (10)
  1. CELECOXIB. [Suspect]
     Active Substance: CELECOXIB
     Indication: PRODUCT USED FOR UNKNOWN INDICATION
     Route: 048
     Dates: start: 20190310, end: 20190319
  2. RUPAFIN [Concomitant]
     Active Substance: RUPATADINE FUMARATE
     Dosage: DOSAGE IS UNCERTAIN.
     Route: 065
  3. ONETRAM [Suspect]
     Active Substance: TRAMADOL HYDROCHLORIDE
     Indication: BACK PAIN
     Route: 048
     Dates: start: 20190307, end: 20190311
  4. BILANOA [Concomitant]
     Active Substance: BILASTINE
     Dosage: DOSAGE IS UNCERTAIN.
     Route: 065
  5. TECENTRIQ [Suspect]
     Active Substance: ATEZOLIZUMAB
     Indication: LUNG ADENOCARCINOMA
     Route: 041
     Dates: start: 20190311, end: 20190401
  6. TAXOL [Suspect]
     Active Substance: PACLITAXEL
     Indication: LUNG ADENOCARCINOMA
     Route: 041
     Dates: start: 20190311, end: 20190421
  7. AVASTIN [Suspect]
     Active Substance: BEVACIZUMAB
     Indication: LUNG ADENOCARCINOMA
     Route: 041
     Dates: start: 20190311, end: 20190421
  8. CODEINE [Concomitant]
     Active Substance: CODEINE
     Route: 065
     Dates: start: 201903
  9. PARAPLATIN [Suspect]
     Active Substance: CARBOPLATIN
     Indication: LUNG ADENOCARCINOMA
     Route: 041
     Dates: start: 20190311, end: 20190421
  10. ZOLPIDEM TARTRATE. [Suspect]
     Active Substance: ZOLPIDEM TARTRATE
     Indication: INSOMNIA
     Route: 048
     Dates: end: 201903

REACTIONS (9)
  - Influenza like illness [Unknown]
  - Hypoaesthesia [Unknown]
  - Depressed level of consciousness [Unknown]
  - Liver disorder [Recovering/Resolving]
  - Infusion related reaction [Recovered/Resolved]
  - Febrile neutropenia [Recovered/Resolved]
  - Drug eruption [Recovered/Resolved]
  - Hypotension [Recovered/Resolved]
  - Pyrexia [Recovered/Resolved]

NARRATIVE: CASE EVENT DATE: 20190311
